FAERS Safety Report 7411352-2 (Version None)
Quarter: 2011Q2

REPORT INFORMATION
  Report Type: 
  Country: None (occurrence: None)
  Receive Date: 20110413
  Receipt Date: 20100902
  Transmission Date: 20111010
  Serious: Yes (Hospitalization)
  Sender: FDA-Public Use
  Company Number: US-BRISTOL-MYERS SQUIBB COMPANY-15161631

PATIENT
  Age: 62 Year
  Sex: Male

DRUGS (30)
  1. SENNA [Concomitant]
     Indication: CONSTIPATION
     Dosage: SYRUP;1 DF= 2 TEA SPOONS.
  2. ACETAMINOPHEN [Concomitant]
     Indication: PYREXIA
     Dosage: 1 DF=2TABS 650MG ALSO
  3. ACETAMINOPHEN [Concomitant]
     Indication: PAIN
     Dosage: 1 DF=2TABS 650MG ALSO
  4. ACETAMINOPHEN [Concomitant]
  5. RADIATION THERAPY [Concomitant]
  6. LASIX [Concomitant]
     Dosage: 10MG/ML;ONLY WHEN SYSTOLIC BP IS MORE THAN 90.
  7. NEULASTA [Concomitant]
     Dosage: 24-36 HOURS AFTER CHEMO;
  8. ALBUTEROL [Concomitant]
     Indication: WHEEZING
     Dosage: 0.083%
  9. EMEND [Concomitant]
     Dosage: CAPSULE
  10. LACTULOSE [Concomitant]
     Indication: CONSTIPATION
     Dosage: 1 DF=10G/15ML 1-2 TEASPOONS
  11. METHYLPREDNISOLONE [Concomitant]
  12. CISPLATIN [Concomitant]
  13. LOPRESSOR [Concomitant]
     Indication: ARRHYTHMIA
     Dosage: 10MG=1ML;SUSPENSION.
  14. CLAVULANATE POTASSIUM [Concomitant]
     Dosage: 20MEQ/15ML
  15. DEXAMETHASONE [Concomitant]
  16. DIPHENHYDRAMINE HCL [Concomitant]
     Dosage: 25MG IVP
  17. PRILOSEC [Concomitant]
     Indication: GASTROOESOPHAGEAL REFLUX DISEASE
     Dosage: LIQUID
  18. DALTEPARIN [Concomitant]
     Indication: COAGULOPATHY
  19. MORPHINE [Concomitant]
     Indication: BREAKTHROUGH PAIN
     Dosage: AS NEEDED.
  20. BACTRIM [Concomitant]
     Indication: ANTIBIOTIC THERAPY
     Dosage: SUSPENSION.
  21. HALOPERIDOL [Concomitant]
     Indication: NAUSEA
  22. LEVOTHYROXINE [Concomitant]
     Indication: THYROID NEOPLASM
     Dosage: PILL
  23. COLACE [Concomitant]
     Indication: DIARRHOEA
     Dosage: 1/2 X DAY.
  24. FENTANYL-100 [Concomitant]
     Indication: PAIN
     Dosage: APPLY 2 PATCHES EVERY 72 HRS
  25. BISACODYL [Concomitant]
     Indication: CONSTIPATION
     Dosage: SUPPOSITORY;1 DF= 1 SUPPOSITORY. 1 EVERY 3 DAYS
  26. NORMAL SALINE [Concomitant]
  27. ERBITUX [Suspect]
     Indication: HEAD AND NECK CANCER
     Dosage: 400MG/SQ MTR LOADING DOSE 100MG. LOT NO:09700004A EXP DT:7/12,  09000215A EXP DT:2/12
     Route: 042
     Dates: start: 20100622
  28. AMITRIPTYLINE [Concomitant]
     Indication: SLEEP DISORDER
     Dosage: 2@BEDTIME.
  29. TRAZODONE HCL [Concomitant]
     Indication: SLEEP DISORDER
     Dosage: OR 1.5 TEASPOON AT BED TIME.
  30. ATROVENT [Concomitant]
     Indication: WHEEZING
     Dosage: 0.02%

REACTIONS (1)
  - HYPERSENSITIVITY [None]
